FAERS Safety Report 14838218 (Version 1)
Quarter: 2018Q2

REPORT INFORMATION
  Report Type: Spontaneous
  Country: US (occurrence: US)
  Receive Date: 20180502
  Receipt Date: 20180502
  Transmission Date: 20180711
  Serious: No
  Sender: FDA-Public Use
  Company Number: US-GLAXOSMITHKLINE-US2018073761

PATIENT
  Sex: Female

DRUGS (1)
  1. ABREVA [Suspect]
     Active Substance: DOCOSANOL
     Indication: ORAL HERPES
     Dosage: UNK

REACTIONS (6)
  - Condition aggravated [Unknown]
  - Drug ineffective [Unknown]
  - Oral herpes [Unknown]
  - Lip infection [Unknown]
  - Lip erythema [Unknown]
  - Lip swelling [Unknown]
